FAERS Safety Report 16075668 (Version 1)
Quarter: 2019Q1

REPORT INFORMATION
  Report Type: Report from Study
  Country: None (occurrence: BR)
  Receive Date: 20190315
  Receipt Date: 20190315
  Transmission Date: 20190418
  Serious: Yes (Hospitalization, Other)
  Sender: FDA-Public Use
  Company Number: BR-ABBVIE-19K-020-2702406-00

PATIENT
  Sex: Female
  Weight: 84 kg

DRUGS (1)
  1. HUMIRA [Suspect]
     Active Substance: ADALIMUMAB
     Indication: PSORIATIC ARTHROPATHY
     Route: 058
     Dates: start: 20180329, end: 20190308

REACTIONS (5)
  - Urinary tract infection [Unknown]
  - Kidney infection [Unknown]
  - Acidosis [Unknown]
  - Sepsis [Unknown]
  - Coma [Unknown]

NARRATIVE: CASE EVENT DATE: 20190308
